FAERS Safety Report 13178181 (Version 1)
Quarter: 2017Q1

REPORT INFORMATION
  Report Type: Spontaneous
  Country: US (occurrence: US)
  Receive Date: 20170202
  Receipt Date: 20170202
  Transmission Date: 20170428
  Serious: Yes (Hospitalization)
  Sender: FDA-Public Use
  Company Number: US-BEH-2017077651

PATIENT
  Age: 83 Year
  Sex: Male
  Weight: 77.98 kg

DRUGS (39)
  1. PROAIR HFA [Concomitant]
     Active Substance: ALBUTEROL SULFATE
  2. MONTELUKAST [Concomitant]
     Active Substance: MONTELUKAST SODIUM
  3. OMEPRAZOLE. [Concomitant]
     Active Substance: OMEPRAZOLE
  4. CELEBREX [Concomitant]
     Active Substance: CELECOXIB
  5. CHERATUSSIN [Concomitant]
     Active Substance: AMMONIUM CHLORIDE\DEXTROMETHORPHAN\SODIUM CITRATE
  6. ENABLEX [Concomitant]
     Active Substance: DARIFENACIN HYDROBROMIDE
  7. ZEMAIRA [Suspect]
     Active Substance: .ALPHA.1-PROTEINASE INHIBITOR HUMAN
     Indication: CHRONIC OBSTRUCTIVE PULMONARY DISEASE
     Dosage: 60 MG/KG, QW
     Route: 042
     Dates: start: 20100210
  8. DIPHENHYDRAMINE. [Concomitant]
     Active Substance: DIPHENHYDRAMINE
  9. ELIQUIS [Concomitant]
     Active Substance: APIXABAN
  10. FUROSEMIDE. [Concomitant]
     Active Substance: FUROSEMIDE
  11. VITAMIN C [Concomitant]
     Active Substance: ASCORBIC ACID
  12. VESICARE [Concomitant]
     Active Substance: SOLIFENACIN SUCCINATE
  13. DILTIAZEM. [Concomitant]
     Active Substance: DILTIAZEM
  14. MULTIVITAMIN                       /00097801/ [Concomitant]
     Active Substance: VITAMINS
  15. KLOR-CON [Concomitant]
     Active Substance: POTASSIUM CHLORIDE
  16. FERROUS SULFATE. [Concomitant]
     Active Substance: FERROUS SULFATE
  17. LMX                                /00033401/ [Concomitant]
  18. FISH OIL [Concomitant]
     Active Substance: FISH OIL
  19. CALCIUM [Concomitant]
     Active Substance: CALCIUM
  20. PROAIR HFA [Concomitant]
     Active Substance: ALBUTEROL SULFATE
  21. CALCIUM D                          /00944201/ [Concomitant]
     Active Substance: CALCIUM CARBONATE\CHOLECALCIFEROL
  22. EPIPEN [Concomitant]
     Active Substance: EPINEPHRINE
  23. ZYRTEC [Concomitant]
     Active Substance: CETIRIZINE HYDROCHLORIDE
  24. MUCINEX [Concomitant]
     Active Substance: GUAIFENESIN
  25. NORMAL SALINE [Concomitant]
     Active Substance: SODIUM CHLORIDE
  26. ZEMAIRA [Suspect]
     Active Substance: .ALPHA.1-PROTEINASE INHIBITOR HUMAN
     Indication: ASTHMA
     Dosage: UNK
     Route: 042
  27. ZEMAIRA [Suspect]
     Active Substance: .ALPHA.1-PROTEINASE INHIBITOR HUMAN
     Indication: RHINITIS ALLERGIC
  28. SODIUM CHLORIDE. [Concomitant]
     Active Substance: SODIUM CHLORIDE
  29. TESTOSTERONE. [Concomitant]
     Active Substance: TESTOSTERONE
  30. TESSALON [Concomitant]
     Active Substance: BENZONATATE
  31. VITAMIN D3 [Concomitant]
     Active Substance: CHOLECALCIFEROL
  32. COUMADIN [Concomitant]
     Active Substance: WARFARIN SODIUM
  33. COENZYME Q10 [Concomitant]
     Active Substance: UBIDECARENONE
  34. DULERA [Concomitant]
     Active Substance: FORMOTEROL FUMARATE DIHYDRATE\MOMETASONE FUROATE
  35. XOPENEX [Concomitant]
     Active Substance: LEVALBUTEROL HYDROCHLORIDE
  36. ALBUTEROL                          /00139501/ [Concomitant]
     Active Substance: ALBUTEROL
  37. TAMSULOSIN [Concomitant]
     Active Substance: TAMSULOSIN
  38. FLUTICASONE. [Concomitant]
     Active Substance: FLUTICASONE
  39. XOLAIR [Concomitant]
     Active Substance: OMALIZUMAB

REACTIONS (1)
  - Cardioversion [Unknown]

NARRATIVE: CASE EVENT DATE: 20170124
